FAERS Safety Report 5843773-3 (Version None)
Quarter: 2008Q3

REPORT INFORMATION
  Report Type: 
  Country: None (occurrence: None)
  Receive Date: 20080813
  Receipt Date: 20080806
  Transmission Date: 20090109
  Serious: Yes (Hospitalization)
  Sender: FDA-Public Use
  Company Number: TW-BRISTOL-MYERS SQUIBB COMPANY-14290738

PATIENT
  Age: 65 Year
  Sex: Female

DRUGS (2)
  1. CYCLOPHOSPHAMIDE [Suspect]
     Indication: BREAST CANCER
     Dosage: 1 DOSAGE FORM = 984(UNITS NOT MENTIONED).
     Route: 042
     Dates: start: 20080719, end: 20080719
  2. DOXORUBICIN HCL [Suspect]
     Indication: BREAST CANCER
     Dosage: 1 DOSAGE FORM = 98(UNITS NOT MENTIONED).
     Route: 042
     Dates: start: 20080719, end: 20080719

REACTIONS (1)
  - CELLULITIS [None]
